FAERS Safety Report 14017545 (Version 1)
Quarter: 2017Q3

REPORT INFORMATION
  Report Type: Spontaneous
  Country: US (occurrence: US)
  Receive Date: 20170927
  Receipt Date: 20170927
  Transmission Date: 20171128
  Serious: No
  Sender: FDA-Public Use
  Company Number: US-LUNDBECK-DKLU2036582

PATIENT
  Age: 1 Year
  Sex: Male

DRUGS (2)
  1. SABRIL [Suspect]
     Active Substance: VIGABATRIN
     Indication: INFANTILE SPASMS
     Route: 048
     Dates: start: 20170804
  2. SABRIL [Suspect]
     Active Substance: VIGABATRIN
     Indication: CONGENITAL CYST

REACTIONS (3)
  - Faeces discoloured [Unknown]
  - Drooling [Unknown]
  - Pallor [Unknown]

NARRATIVE: CASE EVENT DATE: 201708
